FAERS Safety Report 5521411-7 (Version None)
Quarter: 2007Q4

REPORT INFORMATION
  Report Type: 
  Country: None (occurrence: None)
  Receive Date: 20071119
  Receipt Date: 20071107
  Transmission Date: 20080405
  Serious: Yes (Other)
  Sender: FDA-Public Use
  Company Number: FR-PFIZER INC-2007076205

PATIENT
  Age: 75 Year
  Sex: Female
  Weight: 70 kg

DRUGS (2)
  1. CHAMPIX [Suspect]
  2. XANAX [Concomitant]
     Dosage: TEXT:0.25
     Route: 048

REACTIONS (3)
  - AGITATION [None]
  - INSOMNIA [None]
  - MENTAL DISORDER [None]
